FAERS Safety Report 6857381-9 (Version None)
Quarter: 2010Q3

REPORT INFORMATION
  Report Type: 
  Country: None (occurrence: None)
  Receive Date: 20100719
  Receipt Date: 20100709
  Transmission Date: 20110219
  Serious: Yes (Other)
  Sender: FDA-Public Use
  Company Number: US-AMGEN-QUU423435

PATIENT
  Sex: Female

DRUGS (1)
  1. ENBREL [Suspect]
     Indication: RHEUMATOID ARTHRITIS
     Route: 058
     Dates: start: 20091230

REACTIONS (4)
  - COUGH [None]
  - PARANASAL SINUS HYPERSECRETION [None]
  - RECTAL HAEMORRHAGE [None]
  - TONGUE NEOPLASM BENIGN [None]
